FAERS Safety Report 7855516-2 (Version None)
Quarter: 2011Q4

REPORT INFORMATION
  Report Type: 
  Country: None (occurrence: None)
  Receive Date: 20111026
  Receipt Date: 20111011
  Transmission Date: 20120403
  Serious: Yes (Death, Other)
  Sender: FDA-Public Use
  Company Number: IT-ROCHE-1005556

PATIENT
  Age: 68 Year
  Sex: Female

DRUGS (4)
  1. CLOPIDOGREL [Suspect]
     Indication: PROPHYLAXIS
  2. FLOSEAL [Suspect]
     Indication: VASCULAR PSEUDOANEURYSM
     Route: 013
  3. ASPIRIN [Suspect]
     Indication: PROPHYLAXIS
  4. ALTEPLASE [Suspect]
     Indication: ARTERIAL THROMBOSIS
     Dosage: ROUTE: PERCUTANEOUS

REACTIONS (7)
  - HAEMATOMA [None]
  - VASCULAR PSEUDOANEURYSM [None]
  - INTESTINAL INFARCTION [None]
  - RETROPERITONEAL HAEMATOMA [None]
  - HYPOTENSION [None]
  - MUSCLE HAEMORRHAGE [None]
  - ABDOMINAL PAIN [None]
